FAERS Safety Report 5845645-7 (Version None)
Quarter: 2008Q3

REPORT INFORMATION
  Report Type: 
  Country: None (occurrence: None)
  Receive Date: 20080814
  Receipt Date: 20080806
  Transmission Date: 20090109
  Serious: Yes (Hospitalization, Disabling, Other)
  Sender: FDA-Public Use
  Company Number: DE-ABBOTT-08P-062-0465793-00

PATIENT
  Age: 14 Year
  Sex: Male
  Weight: 54 kg

DRUGS (2)
  1. SEVORANE LIQUID FOR INHALATION [Suspect]
     Indication: SURGERY
     Route: 055
     Dates: start: 20060114, end: 20060114
  2. SEVORANE LIQUID FOR INHALATION [Suspect]
     Indication: UPPER LIMB FRACTURE

REACTIONS (18)
  - ANAESTHETIC COMPLICATION NEUROLOGICAL [None]
  - ATAXIA [None]
  - BLOOD PRESSURE DECREASED [None]
  - BRAIN HYPOXIA [None]
  - COMA [None]
  - DEPRESSED MOOD [None]
  - DIZZINESS [None]
  - DYSARTHRIA [None]
  - DYSTONIA [None]
  - FATIGUE [None]
  - HYPOKINESIA [None]
  - MUTISM [None]
  - PARAESTHESIA [None]
  - POOR QUALITY SLEEP [None]
  - POST CONCUSSION SYNDROME [None]
  - POST PROCEDURAL COMPLICATION [None]
  - SCREAMING [None]
  - SPEECH DISORDER [None]
